FAERS Safety Report 5675495-6 (Version None)
Quarter: 2008Q2

REPORT INFORMATION
  Report Type: 
  Country: None (occurrence: None)
  Receive Date: 20080311
  Receipt Date: 20071214
  Transmission Date: 20081010
  Serious: Yes (Death)
  Sender: FDA-Public Use
  Company Number: PHEH2007US15750

PATIENT
  Age: 40 Year
  Sex: Male

DRUGS (2)
  1. TRILEPTAL [Suspect]
     Indication: CONVULSION
     Dosage: 600MG QAM, 900MG QPM, ORAL
     Route: 048
     Dates: start: 20020101
  2. IBUPROFEN [Concomitant]

REACTIONS (4)
  - CONVULSION [None]
  - DEPENDENCE ON RESPIRATOR [None]
  - DROWNING [None]
  - LOSS OF CONSCIOUSNESS [None]
